FAERS Safety Report 9386799 (Version 1)
Quarter: 2013Q3

REPORT INFORMATION
  Report Type: Spontaneous
  Country: ZA (occurrence: ZA)
  Receive Date: 20130708
  Receipt Date: 20130708
  Transmission Date: 20140515
  Serious: Yes (Hospitalization)
  Sender: FDA-Public Use
  Company Number: ZA-ACCORD-018333

PATIENT
  Age: 62 Year
  Sex: Female
  Weight: 79 kg

DRUGS (5)
  1. PACLITAXEL [Suspect]
     Indication: OVARIAN CANCER
     Dosage: ONGOING
     Route: 042
     Dates: start: 20130403
  2. ONICIT [Concomitant]
     Indication: PREMEDICATION
     Dosage: ONGOING
     Route: 042
     Dates: start: 20130403
  3. DEXAMETHASONE [Concomitant]
     Indication: PREMEDICATION
     Dosage: ONGOING
     Route: 042
     Dates: start: 20130403
  4. CIMETIDINE [Concomitant]
     Indication: PREMEDICATION
     Dosage: ONGOING
     Route: 042
     Dates: start: 20130403
  5. PHENERGAN [Concomitant]
     Indication: PREMEDICATION
     Dosage: ONGOING
     Route: 048
     Dates: start: 20130403

REACTIONS (1)
  - Burning sensation [Not Recovered/Not Resolved]
